FAERS Safety Report 7149713-1 (Version None)
Quarter: 2010Q4

REPORT INFORMATION
  Report Type: 
  Country: None (occurrence: None)
  Receive Date: 20101210
  Receipt Date: 20101129
  Transmission Date: 20110411
  Serious: Yes (Other)
  Sender: FDA-Public Use
  Company Number: CA-BIOGENIDEC-2010BI039058

PATIENT
  Age: 22 Year
  Sex: Female

DRUGS (6)
  1. TYSABRI [Suspect]
     Indication: RELAPSING-REMITTING MULTIPLE SCLEROSIS
     Route: 042
     Dates: start: 20080408
  2. TYSABRI [Suspect]
     Route: 042
     Dates: start: 20100212
  3. AVONEX [Concomitant]
     Dates: start: 20090401, end: 20100101
  4. COPAXONE [Concomitant]
     Dates: start: 20080601, end: 20090301
  5. COPAXONE [Concomitant]
     Dates: start: 20100101, end: 20100401
  6. REBIF [Concomitant]
     Dates: start: 20100501

REACTIONS (1)
  - OPTIC NEURITIS [None]
